FAERS Safety Report 22024236 (Version 1)
Quarter: 2023Q1

REPORT INFORMATION
  Report Type: Spontaneous
  Country: US (occurrence: None)
  Receive Date: 20230223
  Receipt Date: 20230223
  Transmission Date: 20230418
  Serious: No
  Sender: FDA-Public Use
  Company Number: US-ROCHE-3022726

PATIENT
  Sex: Female
  Weight: 90.800 kg

DRUGS (8)
  1. XOLAIR [Suspect]
     Active Substance: OMALIZUMAB
     Indication: Asthma
     Dosage: DOSE: 150MG/ML PFS
     Route: 058
     Dates: start: 20201009
  2. XOLAIR [Suspect]
     Active Substance: OMALIZUMAB
  3. XOLAIR [Suspect]
     Active Substance: OMALIZUMAB
  4. ALBUTEROL [Concomitant]
     Active Substance: ALBUTEROL
     Dates: start: 20200313
  5. PROAIR HFA [Concomitant]
     Active Substance: ALBUTEROL SULFATE
     Dates: start: 20200313
  6. IPRATROPIUM [Concomitant]
     Active Substance: IPRATROPIUM
     Dates: start: 20200313
  7. PREDNISONE [Concomitant]
     Active Substance: PREDNISONE
     Route: 048
     Dates: start: 20200313
  8. XOLAIR [Concomitant]
     Active Substance: OMALIZUMAB
     Route: 058
     Dates: start: 20210413

REACTIONS (1)
  - COVID-19 [Unknown]
